FAERS Safety Report 14697460 (Version 1)
Quarter: 2018Q1

REPORT INFORMATION
  Report Type: Spontaneous
  Country: US (occurrence: US)
  Receive Date: 20180330
  Receipt Date: 20180330
  Transmission Date: 20180509
  Serious: No
  Sender: FDA-Public Use
  Company Number: US-SA-2017SA172037

PATIENT
  Age: 73 Year
  Sex: Female

DRUGS (1)
  1. ALLEGRA [Suspect]
     Active Substance: FEXOFENADINE HYDROCHLORIDE
     Dosage: WEEK  AND HALF TO 2 WEEK AGO
     Route: 048

REACTIONS (10)
  - Cheilosis [Unknown]
  - Hypersensitivity [Unknown]
  - Swollen tongue [Unknown]
  - Condition aggravated [Unknown]
  - Dry skin [Unknown]
  - Back pain [Unknown]
  - Lip swelling [Recovering/Resolving]
  - Glossodynia [Unknown]
  - Lip injury [Recovering/Resolving]
  - Gingival pain [Unknown]
